FAERS Safety Report 4803638-2 (Version None)
Quarter: 2005Q4

REPORT INFORMATION
  Report Type: 
  Country: None (occurrence: None)
  Receive Date: 20051014
  Receipt Date: 20050713
  Transmission Date: 20060501
  Serious: No
  Sender: FDA-Public Use
  Company Number: 05P-163-0298014-00

PATIENT
  Age: 23 Year
  Sex: Female

DRUGS (5)
  1. KALETRA [Suspect]
     Indication: SYSTEMIC ANTIVIRAL TREATMENT
     Dosage: ORAL
     Route: 048
     Dates: start: 20041101
  2. ZIDOVUDINE W/ LAMIVUDINE [Suspect]
     Indication: SYSTEMIC ANTIVIRAL TREATMENT
     Dosage: ORAL
     Route: 048
     Dates: start: 20040101
  3. ZIDOVUDINE W/ LAMIVUDINE [Suspect]
     Indication: SYSTEMIC ANTIVIRAL TREATMENT
     Dosage: ORAL
     Route: 048
     Dates: start: 20041101
  4. NEVIRAPINE [Suspect]
     Indication: SYSTEMIC ANTIVIRAL TREATMENT
     Dosage: ORAL
     Route: 048
     Dates: start: 20040201, end: 20040922
  5. TENOFOVIR [Suspect]
     Indication: SYSTEMIC ANTIVIRAL TREATMENT
     Dosage: 300 MG, 1 IN 1 D, ORAL
     Route: 048
     Dates: start: 20041101

REACTIONS (2)
  - ANAEMIA [None]
  - PREMATURE LABOUR [None]
